FAERS Safety Report 24112363 (Version 1)
Quarter: 2024Q3

REPORT INFORMATION
  Report Type: Report from Study
  Country: US (occurrence: None)
  Receive Date: 20240719
  Receipt Date: 20240719
  Transmission Date: 20241017
  Serious: Yes (Other)
  Sender: ASTRAZENECA
  Company Number: 2020SE93036

PATIENT
  Sex: Female
  Weight: 73.5 kg

DRUGS (1)
  1. BRILINTA [Suspect]
     Active Substance: TICAGRELOR
     Indication: Stent placement
     Dosage: DOSE UNKNOWN, TWO TIMES A DAY
     Route: 048
     Dates: start: 20190404

REACTIONS (5)
  - Ovarian cancer [Not Recovered/Not Resolved]
  - Weight decreased [Unknown]
  - Body height decreased [Unknown]
  - Ageusia [Not Recovered/Not Resolved]
  - Product dose omission issue [Not Recovered/Not Resolved]
